FAERS Safety Report 26216852 (Version 1)
Quarter: 2025Q4

REPORT INFORMATION
  Report Type: Spontaneous
  Country: EU (occurrence: EU)
  Receive Date: 20251231
  Receipt Date: 20251231
  Transmission Date: 20260119
  Serious: Yes (Other)
  Sender: MERCK KGAA
  Company Number: None

PATIENT
  Age: 56 Year
  Sex: Female
  Weight: 69 kg

DRUGS (1)
  1. EUTHYROX [Suspect]
     Active Substance: LEVOTHYROXINE SODIUM
     Indication: Autoimmune thyroiditis
     Dates: start: 2025

REACTIONS (6)
  - Nervousness [Recovering/Resolving]
  - Muscle atrophy [Recovering/Resolving]
  - Fatigue [Recovering/Resolving]
  - Chest discomfort [Recovering/Resolving]
  - Malaise [Recovering/Resolving]
  - Insomnia [Recovering/Resolving]

NARRATIVE: CASE EVENT DATE: 20251001
